FAERS Safety Report 20331954 (Version 1)
Quarter: 2022Q1

REPORT INFORMATION
  Report Type: Spontaneous
  Country: JP (occurrence: JP)
  Receive Date: 20220113
  Receipt Date: 20220113
  Transmission Date: 20220424
  Serious: Yes (Other)
  Sender: FDA-Public Use
  Company Number: JP-PFIZER INC-202200016583

PATIENT
  Age: 82 Year
  Sex: Male

DRUGS (1)
  1. LYRICA [Suspect]
     Active Substance: PREGABALIN
     Dosage: 1 DF, 2X/DAY
     Route: 048

REACTIONS (4)
  - Dementia [Unknown]
  - Decreased appetite [Unknown]
  - Gait disturbance [Unknown]
  - Sluggishness [Unknown]

NARRATIVE: CASE EVENT DATE: 20220101
